FAERS Safety Report 10248774 (Version 2)
Quarter: 2014Q2

REPORT INFORMATION
  Report Type: Spontaneous
  Country: CH (occurrence: CH)
  Receive Date: 20140620
  Receipt Date: 20140620
  Transmission Date: 20141212
  Serious: Yes (Hospitalization)
  Sender: FDA-Public Use
  Company Number: CH-ASPEN PHARMA TRADING LIMITED US-AG-2014-003383

PATIENT
  Age: 61 Year
  Sex: Male

DRUGS (62)
  1. CHLORAMBUCIL [Suspect]
     Indication: CHRONIC LYMPHOCYTIC LEUKAEMIA
     Route: 065
  2. OBINUTUZUMAB [Suspect]
     Indication: CHRONIC LYMPHOCYTIC LEUKAEMIA
     Dosage: INFUSION RATE 25 CYCLE 1 DAY 1
     Route: 042
     Dates: start: 20131113, end: 20131113
  3. OBINUTUZUMAB [Suspect]
     Dosage: INFUSION RATE 400?CYCLE 1 DAY 2
     Route: 042
     Dates: start: 20131114, end: 20131114
  4. OBINUTUZUMAB [Suspect]
     Dosage: INFUSION RATE 400?CYCLE 1 DAY 8
     Route: 042
     Dates: start: 20131120, end: 20131120
  5. OBINUTUZUMAB [Suspect]
     Dosage: INFUSION RATE 400?CYCLE 1 DAY 15
     Route: 042
     Dates: start: 20131127, end: 20131127
  6. OBINUTUZUMAB [Suspect]
     Dosage: INFUSION RATE 400?CYCLE 2 DAY 1
     Route: 042
     Dates: start: 20131211, end: 20131211
  7. OBINUTUZUMAB [Suspect]
     Dosage: INFUSION RATE 400?CYCLE 3 DAY 1
     Route: 042
     Dates: start: 20140108, end: 20140108
  8. OBINUTUZUMAB [Suspect]
     Dosage: INFUSION RATE 400?CYCLE 4 DAY 1
     Route: 042
     Dates: start: 20140205, end: 20140205
  9. OBINUTUZUMAB [Suspect]
     Dosage: INFUSION RATE 400?CYCLE 5 DAY 1
     Route: 042
     Dates: start: 20140304, end: 20140304
  10. OBINUTUZUMAB [Suspect]
     Dosage: INFUSION RATE 400?CYCLE 6 DAY 1
     Route: 042
     Dates: start: 20140402, end: 20140402
  11. FLUDARABINE [Suspect]
     Indication: CHRONIC LYMPHOCYTIC LEUKAEMIA
     Dosage: CYCLE 1 DAY 1
     Route: 042
     Dates: start: 20131113, end: 20131113
  12. FLUDARABINE [Suspect]
     Dosage: CYCLE 1 DAY 2
     Route: 042
     Dates: start: 20131114, end: 20131114
  13. FLUDARABINE [Suspect]
     Dosage: CYCLE 1 DAY 3
     Route: 042
     Dates: start: 20131115, end: 20131115
  14. FLUDARABINE [Suspect]
     Dosage: CYCLE 2 DAY 1
     Route: 042
     Dates: start: 20131211, end: 20131211
  15. FLUDARABINE [Suspect]
     Dosage: CYCLE 2 DAY 2
     Route: 042
     Dates: start: 20131212, end: 20131212
  16. FLUDARABINE [Suspect]
     Dosage: CYCLE 2 DAY 3
     Route: 042
     Dates: start: 20131213, end: 20131213
  17. FLUDARABINE [Suspect]
     Dosage: CYCLE 3 DAY 1
     Route: 042
     Dates: start: 20140108, end: 20140108
  18. FLUDARABINE [Suspect]
     Dosage: CYCLE 3 DAY 2
     Route: 042
     Dates: start: 20140109, end: 20140109
  19. FLUDARABINE [Suspect]
     Dosage: CYCLE 3 DAY 3
     Route: 042
     Dates: start: 20140110, end: 20140110
  20. FLUDARABINE [Suspect]
     Dosage: CYCLE 4 DAY 1
     Route: 042
     Dates: start: 20140205, end: 20140205
  21. FLUDARABINE [Suspect]
     Dosage: CYCLE 4 DAY 2
     Route: 042
     Dates: start: 20140206, end: 20140206
  22. FLUDARABINE [Suspect]
     Dosage: CYCLE 4 DAY 3
     Route: 042
     Dates: start: 20140207, end: 20140207
  23. FLUDARABINE [Suspect]
     Dosage: CYCLE 5 DAY 1
     Route: 042
     Dates: start: 20140304, end: 20140304
  24. FLUDARABINE [Suspect]
     Dosage: CYCLE 5 DAY 2
     Route: 042
     Dates: start: 20140305, end: 20140305
  25. FLUDARABINE [Suspect]
     Dosage: CYCLE 5 DAY 3
     Route: 042
     Dates: start: 20140306, end: 20140306
  26. FLUDARABINE [Suspect]
     Dosage: CYCLE 6 DAY 1
     Route: 042
     Dates: start: 20140402, end: 20140402
  27. FLUDARABINE [Suspect]
     Dosage: CYCLE 6 DAY 2
     Route: 042
     Dates: start: 20140403, end: 20140403
  28. FLUDARABINE [Suspect]
     Dosage: CYCLE 6 DAY 3
     Route: 042
     Dates: start: 20140404, end: 20140404
  29. CYCLOPHOSPHAMIDE [Suspect]
     Indication: CHRONIC LYMPHOCYTIC LEUKAEMIA
     Dosage: CYCLE 1 DAY 1
     Route: 042
     Dates: start: 20131113, end: 20131113
  30. CYCLOPHOSPHAMIDE [Suspect]
     Dosage: CYCLE 1 DAY 2
     Route: 042
     Dates: start: 20131114, end: 20131114
  31. CYCLOPHOSPHAMIDE [Suspect]
     Dosage: CYCLE 1 DAY 3
     Route: 042
     Dates: start: 20131115, end: 20131115
  32. CYCLOPHOSPHAMIDE [Suspect]
     Dosage: CYCLE 2 DAY 1
     Route: 042
     Dates: start: 20131211, end: 20131211
  33. CYCLOPHOSPHAMIDE [Suspect]
     Dosage: CYCLE 2 DAY 2
     Route: 042
     Dates: start: 20131212, end: 20131212
  34. CYCLOPHOSPHAMIDE [Suspect]
     Dosage: CYCLE 2 DAY 3
     Route: 042
     Dates: start: 20131213, end: 20131213
  35. CYCLOPHOSPHAMIDE [Suspect]
     Dosage: CYCLE 3 DAY 1
     Route: 042
     Dates: start: 20140108, end: 20140108
  36. CYCLOPHOSPHAMIDE [Suspect]
     Dosage: CYCLE 3 DAY 2
     Route: 042
     Dates: start: 20140109, end: 20140109
  37. CYCLOPHOSPHAMIDE [Suspect]
     Dosage: CYCLE 3 DAY 3
     Route: 042
     Dates: start: 20140110, end: 20140110
  38. CYCLOPHOSPHAMIDE [Suspect]
     Dosage: CYCLE 4 DAY 1
     Route: 042
     Dates: start: 20140205, end: 20140205
  39. CYCLOPHOSPHAMIDE [Suspect]
     Dosage: CYCLE 4 DAY 2
     Route: 042
     Dates: start: 20140206, end: 20140206
  40. CYCLOPHOSPHAMIDE [Suspect]
     Dosage: CYCLE 4 DAY 3
     Route: 042
     Dates: start: 20140207, end: 20140207
  41. CYCLOPHOSPHAMIDE [Suspect]
     Dosage: CYCLE 5 DAY 1
     Route: 042
     Dates: start: 20140304, end: 20140304
  42. CYCLOPHOSPHAMIDE [Suspect]
     Dosage: CYCLE 5 DAY 2
     Route: 042
     Dates: start: 20140305, end: 20140305
  43. CYCLOPHOSPHAMIDE [Suspect]
     Dosage: CYCLE 5 DAY 3
     Route: 042
     Dates: start: 20140306, end: 20140306
  44. CYCLOPHOSPHAMIDE [Suspect]
     Dosage: CYCLE 6 DAY 1
     Route: 042
     Dates: start: 20140402, end: 20140402
  45. CYCLOPHOSPHAMIDE [Suspect]
     Dosage: CYCLE 6 DAY 2
     Route: 042
     Dates: start: 20140403, end: 20140403
  46. CYCLOPHOSPHAMIDE [Suspect]
     Dosage: CYCLE 6 DAY 3
     Route: 042
     Dates: start: 20140404, end: 20140404
  47. CEFEPIME [Concomitant]
     Indication: PRODUCT USED FOR UNKNOWN INDICATION
     Route: 042
     Dates: start: 20131223, end: 20131226
  48. CEFEPIME [Concomitant]
     Route: 048
     Dates: start: 20140507, end: 20140514
  49. NEXIUM [Concomitant]
     Indication: PRODUCT USED FOR UNKNOWN INDICATION
     Route: 048
     Dates: start: 20140108, end: 20140212
  50. NEXIUM [Concomitant]
     Route: 048
     Dates: start: 20140212
  51. DAFALGAN [Concomitant]
     Indication: PRODUCT USED FOR UNKNOWN INDICATION
     Route: 048
     Dates: start: 20131127
  52. BACTRIM FORTE [Concomitant]
     Indication: PRODUCT USED FOR UNKNOWN INDICATION
     Route: 048
     Dates: start: 20131113
  53. VALTREX [Concomitant]
     Indication: PRODUCT USED FOR UNKNOWN INDICATION
     Route: 048
     Dates: start: 20131113
  54. ALLOPURINOL [Concomitant]
     Indication: PRODUCT USED FOR UNKNOWN INDICATION
     Route: 048
     Dates: start: 20131111, end: 20140402
  55. ZOFRAN [Concomitant]
     Indication: PRODUCT USED FOR UNKNOWN INDICATION
     Route: 048
     Dates: start: 20140115, end: 20140122
  56. IMODIUM [Concomitant]
     Indication: PRODUCT USED FOR UNKNOWN INDICATION
     Route: 048
     Dates: start: 20140310, end: 20140323
  57. DEXPANTHENOL [Concomitant]
     Indication: PRODUCT USED FOR UNKNOWN INDICATION
     Route: 048
     Dates: start: 20140312, end: 20140319
  58. SOLCOSERYL [Concomitant]
     Indication: PRODUCT USED FOR UNKNOWN INDICATION
     Route: 048
     Dates: start: 20140312, end: 20140319
  59. TAVEGYL [Concomitant]
     Indication: PRODUCT USED FOR UNKNOWN INDICATION
     Route: 042
     Dates: start: 20131113, end: 20140402
  60. PARACETAMOL [Concomitant]
     Indication: PRODUCT USED FOR UNKNOWN INDICATION
     Route: 048
     Dates: start: 20131113, end: 20140402
  61. PREDNISOLONE [Concomitant]
     Indication: PRODUCT USED FOR UNKNOWN INDICATION
     Dosage: DAY 1 AND 2 OF EVERY CYCLE
     Route: 048
     Dates: start: 20131113, end: 20140402
  62. RINGERS LACTATE [Concomitant]
     Indication: PRODUCT USED FOR UNKNOWN INDICATION
     Dosage: CONTINUOUS
     Route: 042
     Dates: start: 20140507, end: 20140514

REACTIONS (3)
  - Fungal oesophagitis [Recovered/Resolved]
  - Oropharyngeal pain [None]
  - Oesophageal candidiasis [None]
